FAERS Safety Report 11389618 (Version 1)
Quarter: 2015Q3

REPORT INFORMATION
  Report Type: Spontaneous
  Country: DK (occurrence: FR)
  Receive Date: 20150817
  Receipt Date: 20150817
  Transmission Date: 20151125
  Serious: Yes (Congenital Anomaly)
  Sender: FDA-Public Use
  Company Number: FR-FRI-1000078989

PATIENT
  Age: 0 Day
  Sex: Male

DRUGS (2)
  1. ESCITALOPRAM [Suspect]
     Active Substance: ESCITALOPRAM OXALATE
     Route: 064
     Dates: end: 20150427
  2. ESCITALOPRAM [Suspect]
     Active Substance: ESCITALOPRAM OXALATE
     Indication: DEPRESSION
     Dosage: 20 MG ONE DAY / 10 MG THE OTHER DAY
     Route: 064
     Dates: end: 20150427

REACTIONS (5)
  - Congenital foot malformation [Unknown]
  - Talipes [Unknown]
  - Foetal exposure during pregnancy [Recovered/Resolved]
  - Tremor [Recovered/Resolved]
  - Cardiac murmur [Unknown]

NARRATIVE: CASE EVENT DATE: 20150427
